FAERS Safety Report 18206973 (Version 1)
Quarter: 2020Q3

REPORT INFORMATION
  Report Type: Spontaneous
  Country: US (occurrence: US)
  Receive Date: 20200828
  Receipt Date: 20200828
  Transmission Date: 20201103
  Serious: No
  Sender: FDA-Public Use
  Company Number: US-BAYER-2020-180496

PATIENT
  Sex: Male

DRUGS (1)
  1. MIRALAX [Suspect]
     Active Substance: POLYETHYLENE GLYCOL 3350
     Indication: GASTROINTESTINAL DISORDER
     Dosage: HALF AN OUNCE
     Route: 048
     Dates: start: 202007, end: 202008

REACTIONS (3)
  - Incorrect dose administered [Unknown]
  - Diarrhoea [Unknown]
  - Muscle spasms [Unknown]
